FAERS Safety Report 10456395 (Version 1)
Quarter: 2014Q3

REPORT INFORMATION
  Report Type: Spontaneous
  Country: DE (occurrence: None)
  Receive Date: 20140828
  Receipt Date: 20140828
  Transmission Date: 20150326
  Serious: Yes (Hospitalization)
  Sender: FDA-Public Use
  Company Number: 14DE009687

PATIENT
  Age: 59 Year
  Sex: Female

DRUGS (3)
  1. AMITRIPTYLIN (AMITRIPTYLINE HYDROCHLORIDE) [Concomitant]
  2. PAROXETINE (PAROXETINE) UNKNOWN [Suspect]
     Active Substance: PAROXETINE HYDROCHLORIDE
     Indication: PRODUCT USED FOR UNKNOWN INDICATION
     Route: 048
     Dates: end: 20130622
  3. TRAMADOL (TRAMADOL HYDROCHLORIDE) [Concomitant]
     Active Substance: TRAMADOL HYDROCHLORIDE

REACTIONS (1)
  - Delirium [None]

NARRATIVE: CASE EVENT DATE: 20130618
